FAERS Safety Report 6295562-6 (Version None)
Quarter: 2009Q3

REPORT INFORMATION
  Report Type: 
  Country: None (occurrence: None)
  Receive Date: 20090731
  Receipt Date: 20081127
  Transmission Date: 20100115
  Serious: Yes (Hospitalization)
  Sender: FDA-Public Use
  Company Number: CIO09014153

PATIENT
  Age: 48 Year
  Sex: Female

DRUGS (3)
  1. VAPORUB, REGULAR SCENT (CAMPHOR 143.07 MG, CEDA LEAF OIL 20.4 MG, EUCA [Suspect]
     Indication: NASAL CONGESTION
     Dosage: 1 APPLIC, EVENING FOR 2 DAY, TOPICAL
     Route: 061
     Dates: start: 20081125, end: 20081126
  2. METFORMIN HCL [Concomitant]
  3. GLYBURIDE [Concomitant]

REACTIONS (7)
  - BLISTER [None]
  - CHEMICAL BURN OF SKIN [None]
  - EXPIRED DRUG ADMINISTERED [None]
  - MALAISE [None]
  - MUSCULOSKELETAL STIFFNESS [None]
  - PAIN OF SKIN [None]
  - WOUND SECRETION [None]
